FAERS Safety Report 8792849 (Version 5)
Quarter: 2013Q4

REPORT INFORMATION
  Report Type: Report from Study
  Country: US (occurrence: US)
  Receive Date: 20120918
  Receipt Date: 20131011
  Transmission Date: 20140711
  Serious: Yes (Hospitalization, Other)
  Sender: FDA-Public Use
  Company Number: US-ELI_LILLY_AND_COMPANY-US201202005990

PATIENT
  Age: 66 Year
  Sex: Female

DRUGS (14)
  1. TERIPARATIDE [Suspect]
     Dosage: 20 UG, QD
  2. MORPHINE [Concomitant]
     Indication: BACK PAIN
  3. MIRALAX [Concomitant]
     Indication: CONSTIPATION
  4. MOBIC [Concomitant]
  5. PRAVASTATIN [Concomitant]
  6. ATENOLOL [Concomitant]
  7. VALIUM                             /00017001/ [Concomitant]
  8. CALCIUM [Concomitant]
  9. VITAMIN D [Concomitant]
  10. VITAMIN C [Concomitant]
  11. TERIPARATIDE [Suspect]
     Indication: OSTEOPOROSIS
     Dosage: 20 UG, QD
     Route: 058
     Dates: start: 201201
  12. TERIPARATIDE [Suspect]
     Dosage: 20 UG, QD
     Route: 058
  13. TERIPARATIDE [Suspect]
     Dosage: 20 UG, QD
     Route: 058
     Dates: start: 201202
  14. TERIPARATIDE [Suspect]
     Dosage: 20 UG, EACH MORNING
     Route: 058

REACTIONS (20)
  - Rotator cuff syndrome [Unknown]
  - Escherichia infection [Recovered/Resolved]
  - Kidney infection [Recovered/Resolved]
  - Pyrexia [Unknown]
  - Nephrolithiasis [Not Recovered/Not Resolved]
  - Musculoskeletal pain [Unknown]
  - Musculoskeletal discomfort [Unknown]
  - Hearing impaired [Unknown]
  - Fatigue [Unknown]
  - Pain [Not Recovered/Not Resolved]
  - Dizziness [Recovering/Resolving]
  - Dizziness [Recovered/Resolved]
  - Nausea [Recovered/Resolved]
  - Malaise [Not Recovered/Not Resolved]
  - Somnolence [Unknown]
  - Blood urine [Unknown]
  - Constipation [Not Recovered/Not Resolved]
  - Arthralgia [Unknown]
  - Asthenia [Unknown]
  - Pain [Not Recovered/Not Resolved]
